FAERS Safety Report 16890278 (Version 1)
Quarter: 2019Q4

REPORT INFORMATION
  Report Type: Spontaneous
  Country: FR (occurrence: FR)
  Receive Date: 20191007
  Receipt Date: 20191007
  Transmission Date: 20200122
  Serious: Yes (Hospitalization, Other)
  Sender: FDA-Public Use
  Company Number: FR-JNJFOC-20190935465

PATIENT
  Sex: Male

DRUGS (3)
  1. ZYTIGA [Suspect]
     Active Substance: ABIRATERONE ACETATE
     Indication: PRODUCT USED FOR UNKNOWN INDICATION
     Route: 048
     Dates: start: 201810, end: 2019
  2. CASODEX [Concomitant]
     Active Substance: BICALUTAMIDE
     Indication: ANDROGEN THERAPY
  3. DECAPEPTYL                         /00486501/ [Concomitant]
     Active Substance: GONADORELIN
     Indication: ANDROGEN THERAPY

REACTIONS (8)
  - Bone pain [Unknown]
  - Anaemia [Recovering/Resolving]
  - Asthenia [Unknown]
  - General physical condition abnormal [Recovering/Resolving]
  - Inflammation [Unknown]
  - Escherichia urinary tract infection [Unknown]
  - Hepatic mass [Unknown]
  - Weight decreased [Recovering/Resolving]

NARRATIVE: CASE EVENT DATE: 20190718
